FAERS Safety Report 7676602-6 (Version None)
Quarter: 2011Q3

REPORT INFORMATION
  Report Type: 
  Country: None (occurrence: None)
  Receive Date: 20110811
  Receipt Date: 20110802
  Transmission Date: 20111222
  Serious: Yes (Hospitalization, Other)
  Sender: FDA-Public Use
  Company Number: US-RB-031094-11

PATIENT
  Sex: Female

DRUGS (2)
  1. SUBUTEX [Suspect]
     Indication: DRUG DEPENDENCE
     Route: 064
     Dates: start: 20090402, end: 20090618
  2. PAXIL [Concomitant]
     Dosage: DOSAGE UNKNOWN
     Dates: start: 20080101, end: 20090101

REACTIONS (3)
  - TRISOMY 21 [None]
  - FALLOT'S TETRALOGY [None]
  - MATERNAL EXPOSURE DURING PREGNANCY [None]
